FAERS Safety Report 20826287 (Version 2)
Quarter: 2022Q2

REPORT INFORMATION
  Report Type: Report from Study
  Country: US (occurrence: US)
  Receive Date: 20220513
  Receipt Date: 20220627
  Transmission Date: 20220721
  Serious: Yes (Other)
  Sender: FDA-Public Use
  Company Number: US-HORIZON THERAPEUTICS-HZN-2022-003472

PATIENT

DRUGS (1)
  1. PENNSAID [Suspect]
     Active Substance: DICLOFENAC SODIUM
     Indication: Osteoarthritis
     Dosage: 1 DOSAGE FORM (40 MG), TWO PUMPS BID
     Route: 065
     Dates: start: 20200510

REACTIONS (5)
  - Diabetes mellitus [Unknown]
  - Application site discolouration [Recovered/Resolved]
  - Allergic sinusitis [Unknown]
  - Blood cholesterol abnormal [Unknown]
  - Blood pressure increased [Unknown]

NARRATIVE: CASE EVENT DATE: 20200510
